FAERS Safety Report 6438553-4 (Version None)
Quarter: 2009Q4

REPORT INFORMATION
  Report Type: 
  Country: None (occurrence: None)
  Receive Date: 20091112
  Receipt Date: 20090817
  Transmission Date: 20100525
  Serious: No
  Sender: FDA-Public Use
  Company Number: US-ALLERGAN-0911438US

PATIENT
  Age: 68 Year
  Sex: Male

DRUGS (3)
  1. COMBIGAN [Suspect]
     Indication: GLAUCOMA
     Dosage: UNK
  2. LIPITOR [Concomitant]
     Indication: HYPERTENSION
  3. TENANOL [Concomitant]

REACTIONS (1)
  - EYE IRRITATION [None]
